FAERS Safety Report 24245769 (Version 1)
Quarter: 2024Q3

REPORT INFORMATION
  Report Type: Report from Study
  Country: US (occurrence: US)
  Receive Date: 20240824
  Receipt Date: 20240824
  Transmission Date: 20241017
  Serious: Yes (Other)
  Sender: ABBVIE
  Company Number: US-ABBVIE-5750567

PATIENT
  Sex: Female

DRUGS (2)
  1. RINVOQ [Suspect]
     Active Substance: UPADACITINIB
     Indication: Product used for unknown indication
     Route: 048
     Dates: start: 20231102, end: 20240429
  2. RINVOQ [Suspect]
     Active Substance: UPADACITINIB
     Indication: Product used for unknown indication
     Dosage: FIRST ADMIN DATE: 2024
     Route: 048
     Dates: end: 202407

REACTIONS (4)
  - Meniscus operation [Unknown]
  - Joint swelling [Unknown]
  - Therapeutic response shortened [Unknown]
  - Ligament injury [Unknown]

NARRATIVE: CASE EVENT DATE: 20240101
